FAERS Safety Report 12340972 (Version 2)
Quarter: 2016Q2

REPORT INFORMATION
  Report Type: Spontaneous
  Country: US (occurrence: US)
  Receive Date: 20160506
  Receipt Date: 20160607
  Transmission Date: 20160815
  Serious: No
  Sender: FDA-Public Use
  Company Number: US-PFIZER INC-2016246369

PATIENT
  Age: 70 Year
  Sex: Female

DRUGS (13)
  1. SERTRALINE HCL [Suspect]
     Active Substance: SERTRALINE HYDROCHLORIDE
  2. FENOFIBRATE. [Suspect]
     Active Substance: FENOFIBRATE
  3. LIPITOR [Suspect]
     Active Substance: ATORVASTATIN CALCIUM
  4. BACLOFEN. [Suspect]
     Active Substance: BACLOFEN
  5. ZETIA [Suspect]
     Active Substance: EZETIMIBE
  6. REMERON [Suspect]
     Active Substance: MIRTAZAPINE
  7. CITALOPRAM HYDROBROMIDE. [Suspect]
     Active Substance: CITALOPRAM HYDROBROMIDE
  8. TIZANIDINE. [Suspect]
     Active Substance: TIZANIDINE
  9. NIASPAN [Suspect]
     Active Substance: NIACIN
  10. EFFEXOR [Suspect]
     Active Substance: VENLAFAXINE HYDROCHLORIDE
  11. SIMVASTATIN. [Suspect]
     Active Substance: SIMVASTATIN
  12. PRAVASTATIN [Suspect]
     Active Substance: PRAVASTATIN\PRAVASTATIN SODIUM
  13. GABAPENTIN. [Suspect]
     Active Substance: GABAPENTIN

REACTIONS (1)
  - Drug hypersensitivity [Unknown]
